FAERS Safety Report 13752780 (Version 1)
Quarter: 2017Q3

REPORT INFORMATION
  Report Type: Spontaneous
  Country: US (occurrence: US)
  Receive Date: 20170713
  Receipt Date: 20170713
  Transmission Date: 20171127
  Serious: Yes (Other)
  Sender: FDA-Public Use
  Company Number: None

PATIENT
  Age: 28 Year
  Sex: Female
  Weight: 74.97 kg

DRUGS (1)
  1. BUP/NAL [Suspect]
     Active Substance: BUPRENORPHINE\NALOXONE
     Indication: DRUG DEPENDENCE
     Route: 060
     Dates: start: 20170215, end: 20170222

REACTIONS (3)
  - Stomatitis [None]
  - Oral mucosal blistering [None]
  - Hypophagia [None]

NARRATIVE: CASE EVENT DATE: 20170215
